FAERS Safety Report 10028524 (Version 1)
Quarter: 2014Q1

REPORT INFORMATION
  Report Type: Spontaneous
  Country: CH (occurrence: CH)
  Receive Date: 20140321
  Receipt Date: 20140321
  Transmission Date: 20141002
  Serious: Yes (Hospitalization)
  Sender: FDA-Public Use
  Company Number: CH-BAYER-2014-042412

PATIENT
  Age: 45 Year
  Sex: Female

DRUGS (2)
  1. MIRENA [Suspect]
     Indication: CHEMICAL CONTRACEPTION
     Dosage: 1 DF
     Route: 015
     Dates: start: 2007, end: 2010
  2. DYDROGESTERONE [Suspect]
     Indication: ORAL CONTRACEPTION
     Dosage: UNK
     Route: 048
     Dates: start: 201301, end: 201309

REACTIONS (2)
  - Syncope [Recovered/Resolved]
  - Generalised oedema [Recovered/Resolved]
